FAERS Safety Report 8209126-8 (Version None)
Quarter: 2012Q1

REPORT INFORMATION
  Report Type: 
  Country: None (occurrence: None)
  Receive Date: 20120314
  Receipt Date: 20101026
  Transmission Date: 20120608
  Serious: Yes (Life-Threatening, Hospitalization, Disabling, Other)
  Sender: FDA-Public Use
  Company Number: US-BAYER-US-2006-001267

PATIENT
  Age: 48 Year
  Sex: Female
  Weight: 109.55 kg

DRUGS (19)
  1. IRBESARTAN [Concomitant]
  2. ALPRAZOLAM [Concomitant]
  3. AUGMENTIN '125' [Concomitant]
     Indication: DIARRHOEA
  4. NABUMETONE [Concomitant]
  5. VITAMIN TAB [Concomitant]
  6. AUGMENTIN '125' [Concomitant]
     Indication: SINUSITIS
  7. MAGNEVIST [Suspect]
     Dosage: 20 ML, 1 DOSE
     Route: 042
     Dates: start: 20060119, end: 20060119
  8. FLUTICASONE PROPIONATE/SALMETEROL [Concomitant]
  9. GLUCOSAMINE W/CHONDROITIN SULFATE [Concomitant]
  10. DETROL [Concomitant]
  11. AVELOX [Suspect]
     Indication: PNEUMONIA
     Route: 042
  12. METOPROLOL SUCCINATE [Concomitant]
     Dosage: DAILY DOSE 100 MG
  13. MOMETASONE FUROATE [Concomitant]
  14. PAROXETINE [Concomitant]
  15. ZOLOFT [Concomitant]
  16. NEXIUM [Concomitant]
  17. NORVASC [Concomitant]
     Dosage: DAILY DOSE 5 MG
  18. ALBUTEROL [Concomitant]
     Dosage: UNK, AS REQ'D
  19. PREDNISONE TAB [Concomitant]
     Indication: ASTHMA
     Route: 048

REACTIONS (38)
  - ANAPHYLACTIC REACTION [None]
  - NEPHROLITHIASIS [None]
  - RESPIRATORY ARREST [None]
  - SWELLING FACE [None]
  - ELECTROCARDIOGRAM ST SEGMENT ABNORMAL [None]
  - ELECTROCARDIOGRAM POOR R-WAVE PROGRESSION [None]
  - PYREXIA [None]
  - CARDIAC FAILURE CONGESTIVE [None]
  - DIARRHOEA [None]
  - SINUS TACHYCARDIA [None]
  - PAIN [None]
  - SUPRAVENTRICULAR TACHYCARDIA [None]
  - ANAPHYLACTIC SHOCK [None]
  - PRURITUS [None]
  - BURNING SENSATION [None]
  - CARDIAC ARREST [None]
  - HYPOTENSION [None]
  - ANXIETY [None]
  - CLOSTRIDIUM DIFFICILE COLITIS [None]
  - RASH [None]
  - HYPERSENSITIVITY [None]
  - LARYNGOSPASM [None]
  - BLOOD CREATINE PHOSPHOKINASE MB INCREASED [None]
  - NAUSEA [None]
  - PHARYNGEAL OEDEMA [None]
  - WHITE BLOOD CELL COUNT INCREASED [None]
  - AGITATION [None]
  - INFECTION [None]
  - EMOTIONAL DISTRESS [None]
  - WHEEZING [None]
  - CHEST DISCOMFORT [None]
  - DYSPNOEA [None]
  - ERYTHEMA [None]
  - CONFUSIONAL STATE [None]
  - INJURY [None]
  - URTICARIA [None]
  - BREATH SOUNDS ABNORMAL [None]
  - POST-TRAUMATIC STRESS DISORDER [None]
